FAERS Safety Report 22766921 (Version 11)
Quarter: 2024Q4

REPORT INFORMATION
  Report Type: Spontaneous
  Country: IN (occurrence: IN)
  Receive Date: 20230731
  Receipt Date: 20241024
  Transmission Date: 20250114
  Serious: Yes (Hospitalization)
  Sender: PFIZER
  Company Number: IN-PFIZER INC-PV202200118097

PATIENT
  Age: 46 Year
  Sex: Female

DRUGS (20)
  1. PALBOCICLIB [Suspect]
     Active Substance: PALBOCICLIB
     Indication: Breast cancer metastatic
     Dosage: 125 MG, CYCLIC (1X/DAY, 21 DAYS ON 7 DAYS OFF)
     Route: 048
  2. PALBOCICLIB [Suspect]
     Active Substance: PALBOCICLIB
     Dosage: 125 MG, CYCLIC (ONCE A DAY FOR 21 DAYS ON 7 DAYS OFF)
     Route: 048
     Dates: start: 20231206
  3. PALBOCICLIB [Suspect]
     Active Substance: PALBOCICLIB
     Dosage: 125 MG, CYCLIC (ONCE A DAY FOR 21 DAYS ON 7 DAYS OFF X 3 MONTHS)
     Route: 048
     Dates: start: 20240104
  4. PALBOCICLIB [Suspect]
     Active Substance: PALBOCICLIB
     Dosage: 125 MG, CYCLIC (ONCE A DAY FOR 21 DAYS AND THEN 7 DAYS OFF X 2 CYCLES)
     Dates: start: 20240405
  5. GOSERELIN [Concomitant]
     Active Substance: GOSERELIN
     Indication: Metastases to bone
     Dosage: 3.6 MG, CYCLIC, (TODAY)
     Route: 058
     Dates: start: 20221128
  6. GOSERELIN [Concomitant]
     Active Substance: GOSERELIN
     Dosage: 3.6 MG, CYCLIC, (TODAY)
     Route: 058
     Dates: start: 20221228
  7. GOSERELIN [Concomitant]
     Active Substance: GOSERELIN
     Dosage: 3.6 MG, CYCLIC, (TODAY)
     Route: 058
     Dates: start: 20230707
  8. GOSERELIN [Concomitant]
     Active Substance: GOSERELIN
     Dosage: 3.6 MG
     Route: 058
     Dates: start: 20231207
  9. GOSERELIN [Concomitant]
     Active Substance: GOSERELIN
     Dosage: 3.6 MG
     Route: 058
     Dates: start: 20240106
  10. GOSERELIN [Concomitant]
     Active Substance: GOSERELIN
     Dosage: 3.6 MG
     Route: 058
     Dates: start: 20240411
  11. GOSERELIN [Concomitant]
     Active Substance: GOSERELIN
     Dosage: 3.6 MG
     Route: 058
     Dates: start: 20240615
  12. ZOLEDRONIC ACID [Concomitant]
     Active Substance: ZOLEDRONIC ACID
     Indication: Metastases to bone
     Dosage: 4 MG
     Route: 042
     Dates: start: 20221128
  13. ZOLEDRONIC ACID [Concomitant]
     Active Substance: ZOLEDRONIC ACID
     Dosage: 4 MG
     Route: 042
     Dates: start: 20221228
  14. ZOLEDRONIC ACID [Concomitant]
     Active Substance: ZOLEDRONIC ACID
     Dosage: 4 MG
     Route: 042
     Dates: start: 20230705
  15. ZOLEDRONIC ACID [Concomitant]
     Active Substance: ZOLEDRONIC ACID
     Dosage: 4 MG
     Dates: start: 20231207
  16. ZOLEDRONIC ACID [Concomitant]
     Active Substance: ZOLEDRONIC ACID
     Dosage: 4 MG
     Dates: start: 20240615
  17. LETROZOLE [Concomitant]
     Active Substance: LETROZOLE
     Indication: Breast cancer metastatic
     Dosage: 2.5 MG, 1X/DAY
  18. CALCIUM CARBONATE\CHOLECALCIFEROL [Concomitant]
     Active Substance: CALCIUM CARBONATE\CHOLECALCIFEROL
     Dosage: 500 MG, 1X/DAY
  19. LOPERAMIDE [Concomitant]
     Active Substance: LOPERAMIDE
     Indication: Diarrhoea
     Dosage: 2 MG, AS NEEDED
  20. SODIUM CHLORIDE [Concomitant]
     Active Substance: SODIUM CHLORIDE
     Dosage: 100 ML
     Route: 042
     Dates: start: 20231207

REACTIONS (4)
  - Carbohydrate antigen 15-3 increased [Unknown]
  - Bone pain [Unknown]
  - Haemoglobin decreased [Unknown]
  - White blood cell count decreased [Unknown]

NARRATIVE: CASE EVENT DATE: 20240913
